FAERS Safety Report 16863504 (Version 1)
Quarter: 2019Q3

REPORT INFORMATION
  Report Type: Spontaneous
  Country: CN (occurrence: CN)
  Receive Date: 20190927
  Receipt Date: 20190927
  Transmission Date: 20191005
  Serious: Yes (Hospitalization)
  Sender: FDA-Public Use
  Company Number: CN-ELI_LILLY_AND_COMPANY-CN201909007931

PATIENT
  Sex: Female

DRUGS (2)
  1. HUMULIN R [Suspect]
     Active Substance: INSULIN HUMAN
     Indication: DIABETES MELLITUS
     Dosage: 20 DOSAGE FORM, EACH MORNING
     Route: 058
     Dates: start: 20190913, end: 20190915
  2. HUMULIN R [Suspect]
     Active Substance: INSULIN HUMAN
     Dosage: 20 DOSAGE FORM, EACH EVENING
     Route: 058
     Dates: start: 20190913, end: 20190915

REACTIONS (6)
  - Hyperhidrosis [Unknown]
  - Blood glucose increased [Unknown]
  - Drug ineffective [Unknown]
  - Gait disturbance [Unknown]
  - Dizziness [Unknown]
  - General physical condition decreased [Unknown]
